FAERS Safety Report 5038766-2 (Version None)
Quarter: 2006Q2

REPORT INFORMATION
  Report Type: 
  Country: None (occurrence: None)
  Receive Date: 20060627
  Receipt Date: 20060627
  Transmission Date: 20061013
  Serious: Yes (Other)
  Sender: FDA-Public Use
  Company Number: None

PATIENT
  Age: 64 Year
  Sex: Male
  Weight: 79 kg

DRUGS (3)
  1. VANCOMYCIN [Suspect]
     Indication: DEVICE RELATED INFECTION
     Dosage: 1 GM EVERY 12 HOURS IV
     Route: 042
     Dates: start: 20060318, end: 20060318
  2. VANCOMYCIN [Suspect]
     Indication: DEVICE RELATED INFECTION
     Dosage: 1 GM EVERY 12 HOURS IV
     Route: 042
  3. RIFAMPIN [Concomitant]

REACTIONS (3)
  - DRUG HYPERSENSITIVITY [None]
  - INFUSION RELATED REACTION [None]
  - RASH GENERALISED [None]
